FAERS Safety Report 25908520 (Version 1)
Quarter: 2025Q4

REPORT INFORMATION
  Report Type: Spontaneous
  Country: US (occurrence: US)
  Receive Date: 20251010
  Receipt Date: 20251010
  Transmission Date: 20260119
  Serious: No
  Sender: BOEHRINGER INGELHEIM
  Company Number: US-BoehringerIngelheim-2025-BI-100874

PATIENT
  Age: 61 Year
  Sex: Male

DRUGS (1)
  1. OFEV [Suspect]
     Active Substance: NINTEDANIB
     Indication: Product used for unknown indication

REACTIONS (1)
  - Abdominal distension [Not Recovered/Not Resolved]
